FAERS Safety Report 6501861-2 (Version None)
Quarter: 2009Q4

REPORT INFORMATION
  Report Type: 
  Country: None (occurrence: None)
  Receive Date: 20091216
  Receipt Date: 20091111
  Transmission Date: 20100525
  Serious: Yes (Hospitalization)
  Sender: FDA-Public Use
  Company Number: US-SANOFI-AVENTIS-2009SA006544

PATIENT
  Sex: Male

DRUGS (4)
  1. OXALIPLATIN [Suspect]
     Route: 041
     Dates: start: 20091001, end: 20091001
  2. OXALIPLATIN [Suspect]
     Route: 041
     Dates: start: 20091026, end: 20091026
  3. FLUOROURACIL [Suspect]
     Route: 041
     Dates: start: 20091001
  4. FLUOROURACIL [Suspect]
     Route: 041
     Dates: start: 20091026

REACTIONS (11)
  - ABDOMINAL PAIN [None]
  - ABDOMINAL PAIN LOWER [None]
  - ABDOMINAL PAIN UPPER [None]
  - ASTHENIA [None]
  - BLOOD AMYLASE INCREASED [None]
  - DIZZINESS [None]
  - DYSPNOEA [None]
  - GASTROINTESTINAL DISORDER [None]
  - HYPOTENSION [None]
  - LEUKOPENIA [None]
  - PYREXIA [None]
